FAERS Safety Report 18433659 (Version 1)
Quarter: 2020Q4

REPORT INFORMATION
  Report Type: Report from Study
  Country: US (occurrence: US)
  Receive Date: 20201027
  Receipt Date: 20201027
  Transmission Date: 20210114
  Serious: Yes (Hospitalization)
  Sender: FDA-Public Use
  Company Number: US-EISAI MEDICAL RESEARCH-EC-2020-082506

PATIENT
  Age: 52 Year
  Sex: Female
  Weight: 66.4 kg

DRUGS (13)
  1. ERIBULIN [Suspect]
     Active Substance: ERIBULIN
     Indication: ANGIOSARCOMA
     Route: 042
     Dates: start: 20200922, end: 20201013
  2. MELATONIN [Concomitant]
     Active Substance: MELATONIN
  3. AMBIEN [Concomitant]
     Active Substance: ZOLPIDEM TARTRATE
  4. PEMBROLIZUMAB. [Suspect]
     Active Substance: PEMBROLIZUMAB
     Indication: ANGIOSARCOMA
     Route: 042
     Dates: start: 20200922, end: 20201013
  5. B COMPLEX VITAMIN [Concomitant]
  6. ZOFRAN [Concomitant]
     Active Substance: ONDANSETRON HYDROCHLORIDE
  7. ASPIRIN. [Concomitant]
     Active Substance: ASPIRIN
  8. MAGNESIUM MALATE. [Concomitant]
     Active Substance: MAGNESIUM MALATE
  9. CHOLECALCIFEROL [Concomitant]
     Active Substance: CHOLECALCIFEROL
  10. RIVAROXABAN [Concomitant]
     Active Substance: RIVAROXABAN
  11. COMPAZINE [Concomitant]
     Active Substance: PROCHLORPERAZINE MALEATE
  12. LORAZEPAM. [Concomitant]
     Active Substance: LORAZEPAM
  13. THYROID PORK [Concomitant]

REACTIONS (1)
  - Anaemia [Unknown]

NARRATIVE: CASE EVENT DATE: 20201020
